FAERS Safety Report 4441875-X (Version None)
Quarter: 2004Q3

REPORT INFORMATION
  Report Type: 
  Country: None (occurrence: None)
  Receive Date: 20040907
  Receipt Date: 20040805
  Transmission Date: 20050211
  Serious: Yes (Death, Other)
  Sender: FDA-Public Use
  Company Number: US-BRISTOL-MYERS SQUIBB COMPANY-12662276

PATIENT
  Age: 87 Year
  Sex: Female

DRUGS (1)
  1. ENKAID [Suspect]
     Indication: ATRIAL FIBRILLATION
     Dosage: 35MG TID LAST SHIPPED FOR 21-JUN-2004.
     Route: 048
     Dates: end: 20040101

REACTIONS (1)
  - COLORECTAL CANCER [None]
